FAERS Safety Report 10495698 (Version 3)
Quarter: 2015Q1

REPORT INFORMATION
  Report Type: Spontaneous
  Country: IT (occurrence: IT)
  Receive Date: 20141003
  Receipt Date: 20150209
  Transmission Date: 20150720
  Serious: Yes (Hospitalization)
  Sender: FDA-Public Use
  Company Number: IT-BRISTOL-MYERS SQUIBB COMPANY-20877619

PATIENT
  Age: 39 Year
  Sex: Male
  Weight: 89 kg

DRUGS (2)
  1. SIVASTIN [Concomitant]
     Active Substance: SIMVASTATIN
     Indication: PRODUCT USED FOR UNKNOWN INDICATION
     Dosage: TABLETS 20MG
     Route: 048
  2. SPRYCEL [Suspect]
     Active Substance: DASATINIB
     Indication: CHRONIC MYELOID LEUKAEMIA
     Dosage: 08-JAN-2013 TO 30-APR-2014; AGAIN RESTARTED FROM 14MAY2014 TO 8JUL2014
     Route: 048
     Dates: start: 20130108

REACTIONS (5)
  - Acute respiratory failure [Recovered/Resolved]
  - Interstitial lung disease [Recovering/Resolving]
  - Orthopaedic procedure [Unknown]
  - Asthenia [Unknown]
  - Lung infection [Recovered/Resolved]

NARRATIVE: CASE EVENT DATE: 20131023
